FAERS Safety Report 20716032 (Version 1)
Quarter: 2022Q2

REPORT INFORMATION
  Report Type: Spontaneous
  Country: US (occurrence: US)
  Receive Date: 20220415
  Receipt Date: 20220415
  Transmission Date: 20220721
  Serious: No
  Sender: FDA-Public Use
  Company Number: US-ALLERGAN-2118540US

PATIENT
  Age: 21 Year
  Sex: Female

DRUGS (9)
  1. LILETTA [Suspect]
     Active Substance: LEVONORGESTREL
     Indication: Contraception
     Dosage: 52 MG, SINGLE
     Route: 015
     Dates: start: 20210506, end: 20210506
  2. LILETTA [Suspect]
     Active Substance: LEVONORGESTREL
     Indication: Menstruation irregular
  3. CYTOTEC [Concomitant]
     Active Substance: MISOPROSTOL
  4. XANAX [Concomitant]
     Active Substance: ALPRAZOLAM
  5. IBUPROFEN [Concomitant]
     Active Substance: IBUPROFEN
  6. ALLERGY MEDICATION [Concomitant]
     Active Substance: DIPHENHYDRAMINE HYDROCHLORIDE
  7. RITUXAN [Concomitant]
     Active Substance: RITUXIMAB
     Indication: Granulomatosis with polyangiitis
  8. LEUCOVORIN [Concomitant]
     Active Substance: LEUCOVORIN
     Indication: Granulomatosis with polyangiitis
  9. METHOTREXATE [Concomitant]
     Active Substance: METHOTREXATE
     Indication: Granulomatosis with polyangiitis

REACTIONS (3)
  - Off label use [Unknown]
  - Uterine spasm [Unknown]
  - Nausea [Recovered/Resolved]

NARRATIVE: CASE EVENT DATE: 20210506
